FAERS Safety Report 18684939 (Version 3)
Quarter: 2021Q1

REPORT INFORMATION
  Report Type: Spontaneous
  Country: US (occurrence: US)
  Receive Date: 20201230
  Receipt Date: 20210223
  Transmission Date: 20210419
  Serious: Yes (Hospitalization, Other)
  Sender: FDA-Public Use
  Company Number: US-PFIZER INC-2020514100

PATIENT
  Age: 75 Year
  Sex: Male
  Weight: 63.49 kg

DRUGS (1)
  1. RETACRIT [Suspect]
     Active Substance: EPOETIN ALFA-EPBX
     Dosage: 40 MG ONCE FOUR 2 WEEKS
     Dates: start: 2019

REACTIONS (2)
  - Pulmonary oedema [Unknown]
  - Renal disorder [Recovered/Resolved]
